FAERS Safety Report 8344018-5 (Version None)
Quarter: 2012Q2

REPORT INFORMATION
  Report Type: 
  Country: None (occurrence: None)
  Receive Date: 20120508
  Receipt Date: 20110201
  Transmission Date: 20120825
  Serious: Yes (Other)
  Sender: FDA-Public Use
  Company Number: US-TEVA-2010006338

PATIENT
  Sex: Male
  Weight: 90.346 kg

DRUGS (4)
  1. TAMSULOSIN HCL [Concomitant]
  2. VITAMIN C [Concomitant]
  3. FERROUS SULFATE TAB [Concomitant]
  4. TREANDA [Suspect]
     Route: 042
     Dates: start: 20100309, end: 20100406

REACTIONS (1)
  - RASH [None]
